FAERS Safety Report 8504916-6 (Version None)
Quarter: 2012Q3

REPORT INFORMATION
  Report Type: 
  Country: None (occurrence: None)
  Receive Date: 20120712
  Receipt Date: 20120705
  Transmission Date: 20120928
  Serious: Yes (Hospitalization)
  Sender: FDA-Public Use
  Company Number: PHHY2012JP055319

PATIENT
  Sex: Male

DRUGS (6)
  1. DEPAS [Concomitant]
     Indication: INSOMNIA
     Dosage: 1 MG, UNK
     Route: 048
     Dates: start: 20110323, end: 20110407
  2. LYRICA [Concomitant]
     Dosage: 225 MG, UNK
     Route: 048
     Dates: start: 20110309
  3. LOXONIN [Concomitant]
     Indication: ANALGESIC THERAPY
     Dosage: 180 MG, UNK
     Route: 048
     Dates: start: 20110401, end: 20110407
  4. LYRICA [Concomitant]
     Indication: ANALGESIC THERAPY
     Dosage: 150 MG, UNK
     Route: 048
  5. TEGRETOL [Suspect]
     Indication: TRIGEMINAL NEURALGIA
     Dosage: 200 MG, DAILY
     Route: 048
     Dates: start: 20110309, end: 20110407
  6. FAROM [Concomitant]
     Indication: INFECTION PROPHYLAXIS
     Dosage: 600 MG, UNK
     Route: 048
     Dates: start: 20110401, end: 20110403

REACTIONS (6)
  - PYREXIA [None]
  - INTERSTITIAL LUNG DISEASE [None]
  - HYPOXIA [None]
  - DYSPNOEA [None]
  - COUGH [None]
  - C-REACTIVE PROTEIN INCREASED [None]
